FAERS Safety Report 8834683 (Version 3)
Quarter: 2013Q3

REPORT INFORMATION
  Report Type: Report from Study
  Country: AU (occurrence: AU)
  Receive Date: 20121010
  Receipt Date: 20130711
  Transmission Date: 20140515
  Serious: Yes (Hospitalization, Other)
  Sender: FDA-Public Use
  Company Number: AU-JNJFOC-20121001215

PATIENT
  Age: 61 Year
  Sex: Male
  Weight: 129 kg

DRUGS (18)
  1. STELARA [Suspect]
     Indication: PSORIASIS
     Route: 058
     Dates: start: 20110124
  2. STELARA [Suspect]
     Indication: PSORIASIS
     Route: 058
     Dates: start: 20101107
  3. STELARA [Suspect]
     Indication: PSORIASIS
     Route: 058
     Dates: start: 20100814
  4. STELARA [Suspect]
     Indication: PSORIASIS
     Route: 058
     Dates: start: 20110419
  5. STELARA [Suspect]
     Indication: PSORIASIS
     Route: 058
     Dates: start: 20110725
  6. STELARA [Suspect]
     Indication: PSORIASIS
     Route: 058
     Dates: start: 20111017
  7. STELARA [Suspect]
     Indication: PSORIASIS
     Route: 058
     Dates: start: 20120404
  8. STELARA [Suspect]
     Indication: PSORIASIS
     Route: 058
     Dates: start: 20120627
  9. STELARA [Suspect]
     Indication: PSORIASIS
     Route: 058
     Dates: start: 20120917
  10. STELARA [Suspect]
     Indication: PSORIASIS
     Route: 058
     Dates: start: 20100717
  11. STELARA [Suspect]
     Indication: PSORIASIS
     Route: 058
     Dates: start: 20120109
  12. KINSON [Concomitant]
     Route: 048
  13. COVERSYL [Concomitant]
     Route: 048
  14. NOTEN [Concomitant]
     Route: 048
  15. WARFARIN [Concomitant]
     Route: 048
  16. LIPITOR [Concomitant]
     Route: 048
  17. NEXIUM [Concomitant]
     Route: 048
  18. ZOLOFT [Concomitant]
     Route: 048

REACTIONS (4)
  - Haemochromatosis [Recovering/Resolving]
  - Neuropathy peripheral [Unknown]
  - Toe amputation [Recovering/Resolving]
  - Psoriasis [Recovering/Resolving]
